FAERS Safety Report 17360233 (Version 1)
Quarter: 2020Q1

REPORT INFORMATION
  Report Type: Report from Study
  Country: IT (occurrence: IT)
  Receive Date: 20200203
  Receipt Date: 20200203
  Transmission Date: 20200409
  Serious: Yes (Hospitalization)
  Sender: FDA-Public Use
  Company Number: IT-ACCORD-171377

PATIENT
  Age: 50 Year
  Sex: Male

DRUGS (3)
  1. MYCOPHENOLIC ACID. [Suspect]
     Active Substance: MYCOPHENOLIC ACID
     Indication: RENAL TRANSPLANT
     Route: 048
     Dates: start: 20190802, end: 20191203
  2. VALCYTE [Interacting]
     Active Substance: VALGANCICLOVIR HYDROCHLORIDE
     Indication: CELL-MEDIATED IMMUNE DEFICIENCY
     Route: 048
     Dates: start: 20191009, end: 20191203
  3. TACROLIMUS. [Concomitant]
     Active Substance: TACROLIMUS

REACTIONS (7)
  - Intestinal haemorrhage [Recovering/Resolving]
  - Hypotension [Recovering/Resolving]
  - Oropharyngeal pain [Recovering/Resolving]
  - Anaemia [Recovering/Resolving]
  - Aphthous ulcer [Recovering/Resolving]
  - Oral disorder [Recovering/Resolving]
  - Drug interaction [Unknown]

NARRATIVE: CASE EVENT DATE: 20191203
